FAERS Safety Report 10341139 (Version 5)
Quarter: 2014Q3

REPORT INFORMATION
  Report Type: Report from Study
  Country: US (occurrence: US)
  Receive Date: 20140724
  Receipt Date: 20140910
  Transmission Date: 20150326
  Serious: Yes (Hospitalization)
  Sender: FDA-Public Use
  Company Number: US-ACTELION-A-US2014-95271

PATIENT
  Age: 76 Year
  Sex: Male

DRUGS (14)
  1. DOCUSATE [Concomitant]
     Active Substance: DOCUSATE
  2. SPIRIVA [Concomitant]
     Active Substance: TIOTROPIUM BROMIDE MONOHYDRATE
  3. MACITENTAN [Suspect]
     Active Substance: MACITENTAN
     Dosage: 1/2 TABLET, QD
     Route: 048
     Dates: start: 20140122
  4. BUMEX [Concomitant]
     Active Substance: BUMETANIDE
  5. PRAVASTATIN [Concomitant]
     Active Substance: PRAVASTATIN\PRAVASTATIN SODIUM
  6. MULTIVITAMIN [Concomitant]
     Active Substance: VITAMINS
  7. MACITENTAN [Suspect]
     Active Substance: MACITENTAN
     Indication: PULMONARY ARTERIAL HYPERTENSION
     Dosage: 10 MG, QD
     Route: 048
     Dates: start: 20131230, end: 20140115
  8. MACITENTAN [Suspect]
     Active Substance: MACITENTAN
     Dosage: 10 MG, QD
     Route: 048
  9. REVATIO [Concomitant]
     Active Substance: SILDENAFIL CITRATE
  10. ISOSORBIDE [Concomitant]
     Active Substance: ISOSORBIDE
  11. AMIODARONE [Concomitant]
     Active Substance: AMIODARONE
  12. TAMSULOSIN [Concomitant]
     Active Substance: TAMSULOSIN
  13. TYVASO [Concomitant]
     Active Substance: TREPROSTINIL
  14. POTASSIUM [Concomitant]
     Active Substance: POTASSIUM

REACTIONS (4)
  - Vascular graft [Recovering/Resolving]
  - Dyspnoea [Recovering/Resolving]
  - Cardiac operation [Recovering/Resolving]
  - Chest pain [Recovering/Resolving]

NARRATIVE: CASE EVENT DATE: 201401
